FAERS Safety Report 9665117 (Version 1)
Quarter: 2013Q4

REPORT INFORMATION
  Report Type: Spontaneous
  Country: DE (occurrence: DE)
  Receive Date: 20131103
  Receipt Date: 20131103
  Transmission Date: 20140711
  Serious: Yes (Other)
  Sender: FDA-Public Use
  Company Number: DE-MYLANLABS-2013S1023571

PATIENT
  Sex: Female
  Weight: 64 kg

DRUGS (1)
  1. DOXEPIN [Suspect]
     Indication: MIGRAINE PROPHYLAXIS

REACTIONS (9)
  - Affective disorder [Recovered/Resolved]
  - Anxiety [Recovered/Resolved]
  - Derealisation [Recovered/Resolved]
  - Diarrhoea [Recovered/Resolved]
  - Dizziness [Recovered/Resolved]
  - Drug withdrawal syndrome [Recovered/Resolved]
  - Neuralgia [Recovered/Resolved]
  - Seasonal allergy [Recovered/Resolved]
  - Limb discomfort [Recovered/Resolved]
